FAERS Safety Report 16494838 (Version 5)
Quarter: 2019Q3

REPORT INFORMATION
  Report Type: Report from Study
  Country: US (occurrence: US)
  Receive Date: 20190628
  Receipt Date: 20190925
  Transmission Date: 20191004
  Serious: Yes (Other)
  Sender: FDA-Public Use
  Company Number: US-GILEAD-2019-0410381

PATIENT
  Age: 42 Year
  Sex: Female

DRUGS (6)
  1. REMODULIN [Concomitant]
     Active Substance: TREPROSTINIL
  2. SILDENAFIL CITRATE. [Concomitant]
     Active Substance: SILDENAFIL CITRATE
  3. ADCIRCA [Concomitant]
     Active Substance: TADALAFIL
  4. SILDENAFIL. [Concomitant]
     Active Substance: SILDENAFIL
  5. AMBRISENTAN [Suspect]
     Active Substance: AMBRISENTAN
     Indication: PULMONARY ARTERIAL HYPERTENSION
     Dosage: 10 MG, QD
     Route: 048
     Dates: start: 20150616
  6. ELIQUIS [Concomitant]
     Active Substance: APIXABAN

REACTIONS (8)
  - Infusion site hypersensitivity [Unknown]
  - Erythema [Unknown]
  - Oxygen consumption increased [Not Recovered/Not Resolved]
  - Cellulitis [Unknown]
  - Atrial fibrillation [Not Recovered/Not Resolved]
  - Atrial tachycardia [Recovered/Resolved]
  - Dyspnoea [Not Recovered/Not Resolved]
  - Oedema peripheral [Not Recovered/Not Resolved]
